FAERS Safety Report 24697522 (Version 1)
Quarter: 2024Q4

REPORT INFORMATION
  Report Type: Spontaneous
  Country: CH (occurrence: CH)
  Receive Date: 20241204
  Receipt Date: 20241204
  Transmission Date: 20250114
  Serious: Yes (Life-Threatening, Hospitalization, Other)
  Sender: TEVA
  Company Number: None

PATIENT
  Age: 74 Year
  Sex: Male
  Weight: 77 kg

DRUGS (38)
  1. ONDANSETRON [Suspect]
     Active Substance: ONDANSETRON
     Indication: Product used for unknown indication
     Dosage: ONDANSETRON TEVA 1-0-1-0
     Route: 040
     Dates: start: 20240902
  2. SERENOA REPENS WHOLE [Concomitant]
     Active Substance: SERENOA REPENS WHOLE
     Indication: Product used for unknown indication
     Dosage: SAW PALMETTO FRUIT EXTRACT 1-0-0-0
     Route: 048
  3. NOVALGIN (METAMIZOLE SODIUM) [Suspect]
     Active Substance: METAMIZOLE SODIUM
     Indication: Product used for unknown indication
     Dosage: 1G/ 2 ML
     Route: 040
     Dates: start: 20240902
  4. ASPIRIN [Suspect]
     Active Substance: ASPIRIN
     Indication: Product used for unknown indication
     Dosage: 1-0-0-0
     Route: 048
  5. PANTOZOL [Suspect]
     Active Substance: PANTOPRAZOLE SODIUM
     Indication: Product used for unknown indication
     Dosage: 1-0-0-0
     Route: 048
  6. FLUTICASONE FUROATE\VILANTEROL TRIFENATATE [Concomitant]
     Active Substance: FLUTICASONE FUROATE\VILANTEROL TRIFENATATE
     Indication: Product used for unknown indication
     Dosage: TIME INTERVAL: TOTAL: 184 ?G FLUTICASONE FUROATE/ 22 ?G VILANTEROL INHALATION PER SPRAY SHOT 1-0-0-0
     Route: 055
     Dates: start: 20240901, end: 20240901
  7. FLUTICASONE FUROATE\VILANTEROL TRIFENATATE [Concomitant]
     Active Substance: FLUTICASONE FUROATE\VILANTEROL TRIFENATATE
     Indication: Product used for unknown indication
     Dosage: 184 ?G FLUTICASONE FUROATE/ 22 ?G VILANTEROL INHALATION PER SPRAY SHOT 1-0-0-0
     Route: 055
  8. FLUTICASONE FUROATE\VILANTEROL TRIFENATATE [Concomitant]
     Active Substance: FLUTICASONE FUROATE\VILANTEROL TRIFENATATE
     Indication: Product used for unknown indication
     Dosage: TIME INTERVAL: TOTAL: 184 ?G FLUTICASONE FUROATE/ 22 ?G VILANTEROL INHALATION PER SPRAY SHOT 1-0-0-0
     Route: 055
     Dates: start: 20240903, end: 20240903
  9. MOVICOL [Concomitant]
     Active Substance: POLYETHYLENE GLYCOL 3350\POTASSIUM CHLORIDE\SODIUM BICARBONATE\SODIUM CHLORIDE
     Indication: Product used for unknown indication
     Dosage: 1-0-0-0
     Route: 048
  10. METFORMIN HYDROCHLORIDE [Concomitant]
     Active Substance: METFORMIN HYDROCHLORIDE
     Indication: Product used for unknown indication
     Route: 048
  11. JARDIANCE [Concomitant]
     Active Substance: EMPAGLIFLOZIN
     Indication: Product used for unknown indication
     Dosage: 1-0-0-0
     Route: 048
  12. ERYTHROMYCIN [Suspect]
     Active Substance: ERYTHROMYCIN
     Indication: Product used for unknown indication
     Route: 065
     Dates: end: 202409
  13. BISOPROLOL [Suspect]
     Active Substance: BISOPROLOL
     Indication: Product used for unknown indication
     Route: 048
  14. BISOPROLOL [Suspect]
     Active Substance: BISOPROLOL
     Indication: Product used for unknown indication
     Route: 048
  15. TROSPIUM CHLORIDE [Suspect]
     Active Substance: TROSPIUM CHLORIDE
     Indication: Product used for unknown indication
     Dosage: 10 MG 1-0-0-0, 20 MG TROSPIUM CHLORIDE PER TABLET
     Route: 048
  16. TORSEMIDE [Suspect]
     Active Substance: TORSEMIDE
     Indication: Product used for unknown indication
     Dosage: 1-1-0-0, NO LONGER ADMINISTERED AT THE TIME OF HOSPITALIZATION, BUT IN MEDICATION PLAN:
     Route: 048
  17. TORSEMIDE [Suspect]
     Active Substance: TORSEMIDE
     Indication: Product used for unknown indication
     Dosage: 3-0-0-0
     Route: 048
  18. METOCLOPRAMIDE HYDROCHLORIDE [Suspect]
     Active Substance: METOCLOPRAMIDE HYDROCHLORIDE
     Indication: Product used for unknown indication
     Dosage: 10 MG/ 2 ML
     Route: 040
     Dates: start: 20240902
  19. TAMSULOSIN [Suspect]
     Active Substance: TAMSULOSIN
     Indication: Product used for unknown indication
     Dosage: TAMSULOSIN MEPHA RETARD 0-0-1-0
     Route: 048
  20. FRAGMIN [Suspect]
     Active Substance: DALTEPARIN SODIUM
     Indication: Product used for unknown indication
     Dosage: TIME INTERVAL: TOTAL: 5000 I.U./ 0.2 ML AT LEAST 1X ON 03.09.2024
     Route: 058
     Dates: start: 20240903, end: 20240903
  21. FRAGMIN [Suspect]
     Active Substance: DALTEPARIN SODIUM
     Indication: Product used for unknown indication
     Dosage: 5000 I.U./ 0.2 ML
     Route: 040
  22. COLCHICINE [Suspect]
     Active Substance: COLCHICINE
     Indication: Pericarditis constrictive
     Dosage: THE PATIENT RECEIVED 5 TABLETS IN THE MORNING AND HALF A TABLET IN THE EVENING INSTEAD OF HALF A ...
     Route: 048
  23. COLCHICINE [Suspect]
     Active Substance: COLCHICINE
     Indication: Pericarditis constrictive
     Dosage: 5-0-0.5-0
     Route: 048
     Dates: start: 20240902, end: 20240903
  24. COLCHICINE [Suspect]
     Active Substance: COLCHICINE
     Indication: Pericarditis constrictive
     Dosage: 5-0-0.5-0
     Route: 048
     Dates: start: 20240902, end: 20240903
  25. OXYCODONE HYDROCHLORIDE [Concomitant]
     Active Substance: OXYCODONE HYDROCHLORIDE
     Indication: Product used for unknown indication
     Dosage: ADMINISTERED AT LEAST 1X ON 03.09.2024
     Route: 048
     Dates: start: 20240903
  26. ATORVASTATIN CALCIUM [Suspect]
     Active Substance: ATORVASTATIN CALCIUM
     Indication: Product used for unknown indication
     Dosage: 0-0-1-0
     Route: 048
  27. CALCIUM CHLORIDE\MAGNESIUM CHLORIDE\MALIC ACID\POTASSIUM CHLORIDE\SODI [Concomitant]
     Active Substance: CALCIUM CHLORIDE\MAGNESIUM CHLORIDE\MALIC ACID\POTASSIUM CHLORIDE\SODIUM ACETATE\SODIUM CHLORIDE
     Indication: Product used for unknown indication
     Route: 040
     Dates: start: 20240902
  28. Prostaplant [Concomitant]
     Indication: Product used for unknown indication
     Dosage: SAW PALMETTO FRUIT EXTRACT, NETTLE ROOT EXTRACT 1-0-0-0
     Route: 048
  29. AMOXICILLIN\CLAVULANIC ACID [Suspect]
     Active Substance: AMOXICILLIN\CLAVULANIC ACID
     Indication: Product used for unknown indication
     Dosage: CO-AMOXI MEPHA (AMOXICILLIN 500 MG/CLAVULANIC ACID 125 MG) 1-1-1-0
     Route: 048
     Dates: start: 20240902
  30. EZETIMIBE\ROSUVASTATIN [Suspect]
     Active Substance: EZETIMIBE\ROSUVASTATIN
     Indication: Product used for unknown indication
     Dosage: EZETIMIBE ROSUVASTATIN MEPHA 1-0-0-0
     Route: 048
  31. DAPAGLIFLOZIN [Concomitant]
     Active Substance: DAPAGLIFLOZIN
     Indication: Product used for unknown indication
     Dosage: 1-0-0-0
     Route: 048
  32. TRESIBA [Concomitant]
     Active Substance: INSULIN DEGLUDEC
     Indication: Product used for unknown indication
     Dosage: TIME INTERVAL: TOTAL: 100 I.U./ML, 0-0-0-1
     Route: 058
     Dates: start: 20240901, end: 20240901
  33. TRESIBA [Concomitant]
     Active Substance: INSULIN DEGLUDEC
     Indication: Product used for unknown indication
     Dosage: 100 I.U./ML
     Route: 058
  34. TRESIBA [Concomitant]
     Active Substance: INSULIN DEGLUDEC
     Indication: Product used for unknown indication
     Dosage: TIME INTERVAL: TOTAL: 100 I.U./ML, 0-0-0-1
     Route: 058
     Dates: start: 20240903, end: 20240903
  35. PIPAMPERONE [Suspect]
     Active Substance: PIPAMPERONE
     Indication: Product used for unknown indication
     Dosage: 0-0-1-0
     Route: 048
  36. TETRAHYDROZOLINE HYDROCHLORIDE [Concomitant]
     Active Substance: TETRAHYDROZOLINE HYDROCHLORIDE
     Indication: Product used for unknown indication
     Dosage: 0.5 MG/ ML, 2 DROPS 1-1-1-1
     Route: 047
  37. MELATONIN [Concomitant]
     Active Substance: MELATONIN
     Indication: Product used for unknown indication
     Dosage: 2 MG MELATONIN PER TABLET, 4 MG 0-0-0-1
     Route: 048
  38. CORDARONE [Suspect]
     Active Substance: AMIODARONE HYDROCHLORIDE
     Indication: Product used for unknown indication
     Dosage: 1-0-0-0
     Route: 048
     Dates: end: 202409

REACTIONS (7)
  - Cardiogenic shock [Not Recovered/Not Resolved]
  - Renal failure [Recovered/Resolved]
  - Incorrect dose administered [Not Recovered/Not Resolved]
  - Toxicity to various agents [Recovered/Resolved]
  - Prescribed overdose [Not Recovered/Not Resolved]
  - Leukopenia [Recovered/Resolved]
  - Thrombocytopenia [Recovered/Resolved]

NARRATIVE: CASE EVENT DATE: 20240902
